FAERS Safety Report 17217772 (Version 1)
Quarter: 2019Q4

REPORT INFORMATION
  Report Type: Spontaneous
  Country: GB (occurrence: GB)
  Receive Date: 20191231
  Receipt Date: 20191231
  Transmission Date: 20200122
  Serious: Yes (Hospitalization)
  Sender: FDA-Public Use
  Company Number: GB-TEVA-2019-GB-1159443

PATIENT
  Age: 71 Year
  Sex: Male

DRUGS (1)
  1. DONEPEZIL HYDROCHLORIDE. [Suspect]
     Active Substance: DONEPEZIL HYDROCHLORIDE
     Indication: HIV-ASSOCIATED NEUROCOGNITIVE DISORDER
     Dosage: 20 MG
     Route: 048

REACTIONS (2)
  - Product prescribing error [Unknown]
  - Gastrointestinal ulcer [Recovered/Resolved with Sequelae]
